FAERS Safety Report 8381261-3 (Version None)
Quarter: 2012Q2

REPORT INFORMATION
  Report Type: 
  Country: None (occurrence: None)
  Receive Date: 20120522
  Receipt Date: 20120508
  Transmission Date: 20120825
  Serious: Yes (Other)
  Sender: FDA-Public Use
  Company Number: JPI-P-019740

PATIENT
  Age: 60 Year
  Sex: Female
  Weight: 76.2043 kg

DRUGS (10)
  1. CARBOPLATIN [Suspect]
     Indication: BREAST CANCER
     Dates: start: 20120117, end: 20120502
  2. PRASTERONE [Concomitant]
  3. DOCETAXEL [Suspect]
     Indication: BREAST CANCER
     Dates: start: 20120117, end: 20120502
  4. PEGFILGRASTIM [Suspect]
     Indication: BREAST CANCER
     Dates: start: 20120117, end: 20120502
  5. ESTROGEN [Concomitant]
  6. XYREM [Suspect]
     Indication: SOMNOLENCE
     Dosage: 3 GM (1.5 GM, 2 IN 1 D), ORAL 4.5 GM (2.25 GM, 2 IN 1 D), ORAL
     Route: 048
     Dates: start: 20090922, end: 20120410
  7. XYREM [Suspect]
     Indication: NARCOLEPSY
     Dosage: 3 GM (1.5 GM, 2 IN 1 D), ORAL 4.5 GM (2.25 GM, 2 IN 1 D), ORAL
     Route: 048
     Dates: start: 20090922, end: 20120410
  8. XYREM [Suspect]
     Indication: SOMNOLENCE
     Dosage: 3 GM (1.5 GM, 2 IN 1 D), ORAL 4.5 GM (2.25 GM, 2 IN 1 D), ORAL
     Route: 048
     Dates: start: 20090803
  9. XYREM [Suspect]
     Indication: NARCOLEPSY
     Dosage: 3 GM (1.5 GM, 2 IN 1 D), ORAL 4.5 GM (2.25 GM, 2 IN 1 D), ORAL
     Route: 048
     Dates: start: 20090803
  10. TRASTUZUMAB [Suspect]
     Indication: BREAST CANCER
     Dates: start: 20120117

REACTIONS (5)
  - FATIGUE [None]
  - BLOOD GLUCOSE DECREASED [None]
  - INFLAMMATORY CARCINOMA OF THE BREAST [None]
  - NAUSEA [None]
  - METASTASES TO MUSCLE [None]
